FAERS Safety Report 14176949 (Version 1)
Quarter: 2017Q4

REPORT INFORMATION
  Report Type: Spontaneous
  Country: US (occurrence: US)
  Receive Date: 20171110
  Receipt Date: 20171110
  Transmission Date: 20180321
  Serious: Yes (Other)
  Sender: FDA-Public Use
  Company Number: None

PATIENT

DRUGS (1)
  1. NATURE-THROID [Suspect]
     Active Substance: THYROID, PORCINE
     Indication: DRUG THERAPY
     Route: 048
     Dates: start: 20160402

REACTIONS (2)
  - Incorrect dose administered [None]
  - Drug dispensing error [None]
